FAERS Safety Report 18168704 (Version 11)
Quarter: 2022Q3

REPORT INFORMATION
  Report Type: Report from Study
  Country: US (occurrence: US)
  Receive Date: 20200818
  Receipt Date: 20220805
  Transmission Date: 20221026
  Serious: Yes (Other)
  Sender: FDA-Public Use
  Company Number: US-NOVARTISPH-NVSC2020US227650

PATIENT
  Sex: Female

DRUGS (1)
  1. COSENTYX [Suspect]
     Active Substance: SECUKINUMAB
     Indication: Product used for unknown indication
     Dosage: UNK
     Route: 065

REACTIONS (11)
  - Autoimmune disorder [Unknown]
  - COVID-19 [Unknown]
  - Dyspnoea [Unknown]
  - Pain [Unknown]
  - Pain in extremity [Unknown]
  - Malaise [Unknown]
  - Peripheral swelling [Unknown]
  - Back pain [Unknown]
  - Arthritis [Unknown]
  - Drug ineffective [Unknown]
  - Product dose omission issue [Unknown]
